FAERS Safety Report 4289900-3 (Version None)
Quarter: 2004Q1

REPORT INFORMATION
  Report Type: 
  Country: None (occurrence: None)
  Receive Date: 20040206
  Receipt Date: 20040127
  Transmission Date: 20041129
  Serious: Yes (Hospitalization)
  Sender: FDA-Public Use
  Company Number: DE-JNJFOC-20040105375

PATIENT
  Age: 59 Year
  Sex: Male

DRUGS (3)
  1. REMICADE [Suspect]
     Dosage: 200 MG, 1 IN 1 DAY, INTRAVENOUS; SEE IMAGE
     Route: 042
     Dates: start: 20030228, end: 20030228
  2. REMICADE [Suspect]
     Dosage: 200 MG, 1 IN 1 DAY, INTRAVENOUS; SEE IMAGE
     Route: 042
     Dates: start: 20030314, end: 20030314
  3. REMICADE [Suspect]
     Dosage: 200 MG, 1 IN 1 DAY, INTRAVENOUS; SEE IMAGE
     Route: 042
     Dates: start: 20030415, end: 20030415

REACTIONS (5)
  - EMPYEMA [None]
  - INTERVERTEBRAL DISCITIS [None]
  - MONARTHRITIS [None]
  - SPONDYLITIS [None]
  - STAPHYLOCOCCAL INFECTION [None]
